FAERS Safety Report 4336936-X (Version None)
Quarter: 2004Q2

REPORT INFORMATION
  Report Type: 
  Country: None (occurrence: None)
  Receive Date: 20040408
  Receipt Date: 20040322
  Transmission Date: 20050107
  Serious: Yes (Hospitalization)
  Sender: FDA-Public Use
  Company Number: DSA_70225_2004

PATIENT
  Age: 54 Year
  Sex: Female

DRUGS (6)
  1. DARVOCET-N 100 [Suspect]
  2. DITROPAN XL [Suspect]
     Indication: URINARY INCONTINENCE
     Dosage: 15 MG QDAY PO
     Route: 048
  3. DITROPAN XL [Suspect]
     Indication: URINARY INCONTINENCE
     Dosage: 10 MG QHS PO
     Route: 048
  4. HYZAAR [Concomitant]
  5. CELEXA [Concomitant]
  6. AMLODIPINE BESYLATE [Concomitant]

REACTIONS (3)
  - ANAL FISSURE [None]
  - CONSTIPATION [None]
  - URINARY INCONTINENCE [None]
